FAERS Safety Report 9786268 (Version 1)
Quarter: 2013Q4

REPORT INFORMATION
  Report Type: Spontaneous
  Country: PL (occurrence: None)
  Receive Date: 20131224
  Receipt Date: 20131224
  Transmission Date: 20140711
  Serious: Yes (Hospitalization)
  Sender: FDA-Public Use
  Company Number: 2013DEPPL00587

PATIENT
  Age: 60 Year
  Sex: Female

DRUGS (4)
  1. DEPOCYT(E) (CYTARABINE) LIPOSOME INJECTABLE SUSPENSION [Suspect]
     Route: 037
     Dates: start: 20131213, end: 20131213
  2. DEPOCYT(E) (CYTARABINE) LIPOSOME INJECTABLE SUSPENSION [Suspect]
     Route: 037
     Dates: start: 20131213, end: 20131213
  3. LETROZOLE ACCORD ( LETROZOLE) [Concomitant]
  4. CLEXANE ( ENOXAPARIN SODIUM) [Concomitant]

REACTIONS (1)
  - Haematuria [None]
